FAERS Safety Report 5574573-X (Version None)
Quarter: 2007Q4

REPORT INFORMATION
  Report Type: 
  Country: None (occurrence: None)
  Receive Date: 20071227
  Receipt Date: 20071219
  Transmission Date: 20080405
  Serious: Yes (Death, Life-Threatening, Hospitalization, Other)
  Sender: FDA-Public Use
  Company Number: HQWYE113118JUL07

PATIENT
  Sex: Male
  Weight: 68 kg

DRUGS (11)
  1. MYLOTARG [Suspect]
     Indication: ACUTE MYELOID LEUKAEMIA RECURRENT
     Route: 041
     Dates: start: 20070613, end: 20070613
  2. PREDONINE [Concomitant]
     Route: 041
     Dates: start: 20070615, end: 20070615
  3. PREDONINE [Concomitant]
     Route: 041
     Dates: start: 20070616, end: 20070616
  4. PREDONINE [Concomitant]
     Route: 041
     Dates: start: 20070617, end: 20070617
  5. PREDONINE [Concomitant]
     Route: 041
     Dates: start: 20070618, end: 20070618
  6. MICAFUNGIN SODIUM [Suspect]
     Indication: PNEUMONIA
     Dosage: UNKNOWN
     Dates: start: 20070101
  7. MIRACLID [Suspect]
     Indication: PNEUMONIA
     Dosage: UNKNOWN
     Route: 041
     Dates: start: 20070101
  8. CEFEPIME [Suspect]
     Indication: PNEUMONIA
     Dosage: UNKNOWN DOSE
     Dates: start: 20070101
  9. VANCOMYCIN [Suspect]
     Indication: PNEUMONIA
     Dosage: UNKNOWN DOSE
     Dates: start: 20070101
  10. SELBEX [Concomitant]
     Indication: PROPHYLAXIS
     Route: 048
     Dates: start: 20070612, end: 20070624
  11. DIFLUCAN [Concomitant]
     Indication: PROPHYLAXIS
     Route: 048
     Dates: start: 20070612, end: 20070615

REACTIONS (8)
  - ANAEMIA [None]
  - CONDITION AGGRAVATED [None]
  - HYPOPROTEINAEMIA [None]
  - LIVER DISORDER [None]
  - NEUTROPENIA [None]
  - PLATELET COUNT DECREASED [None]
  - PNEUMOCYSTIS JIROVECI PNEUMONIA [None]
  - PNEUMONIA [None]
